FAERS Safety Report 15220288 (Version 2)
Quarter: 2018Q3

REPORT INFORMATION
  Report Type: Spontaneous
  Country: US (occurrence: US)
  Receive Date: 20180731
  Receipt Date: 20180731
  Transmission Date: 20181010
  Serious: Yes (Hospitalization)
  Sender: FDA-Public Use
  Company Number: US-APOTEX-2018AP018182

PATIENT
  Age: 65 Year
  Sex: Male

DRUGS (4)
  1. DEXTROMETHORPHAN HYDROBROMIDE W/QUINIDINE SUL [Suspect]
     Active Substance: DEXTROMETHORPHAN HYDROBROMIDE
     Indication: AFFECT LABILITY
     Dosage: 20 MG DEXTROMETHORPHAN PLUS 10 MG QUINIDINE PER DAY
     Route: 065
  2. LORAZEPAM. [Concomitant]
     Active Substance: LORAZEPAM
     Dosage: 1 MG, TID
     Route: 065
  3. CIPROFLOXACIN. [Suspect]
     Active Substance: CIPROFLOXACIN
     Indication: URINARY TRACT INFECTION
     Dosage: UNK
     Route: 065
  4. LORAZEPAM. [Concomitant]
     Active Substance: LORAZEPAM
     Indication: AFFECT LABILITY
     Dosage: 0.5 MG, 4 TIMES A DAY
     Route: 065

REACTIONS (1)
  - Catatonia [Recovered/Resolved]
